FAERS Safety Report 11088616 (Version 2)
Quarter: 2015Q2

REPORT INFORMATION
  Report Type: Spontaneous
  Country: IR (occurrence: IR)
  Receive Date: 20150504
  Receipt Date: 20150506
  Transmission Date: 20150821
  Serious: Yes (Death)
  Sender: FDA-Public Use
  Company Number: IR-SA-2015SA056466

PATIENT
  Age: 67 Year
  Sex: Female

DRUGS (1)
  1. ELOXATIN [Suspect]
     Active Substance: OXALIPLATIN
     Indication: COLON CANCER
     Dosage: ROUTE-INF.?STRENGTH: 50 MG
     Dates: end: 20150424

REACTIONS (3)
  - Pyrexia [Fatal]
  - Diarrhoea [Fatal]
  - Neutropenia [Fatal]

NARRATIVE: CASE EVENT DATE: 20150424
